FAERS Safety Report 24900723 (Version 1)
Quarter: 2025Q1

REPORT INFORMATION
  Report Type: Report from Study
  Country: GB (occurrence: GB)
  Receive Date: 20250129
  Receipt Date: 20250129
  Transmission Date: 20250408
  Serious: Yes (Other)
  Sender: SAMSUNG BIOEPIS
  Company Number: GB-SAMSUNG BIOEPIS-SB-2025-02823

PATIENT
  Age: 45 Year
  Sex: Female

DRUGS (1)
  1. IMRALDI [Suspect]
     Active Substance: ADALIMUMAB
     Indication: Crohn^s disease
     Dosage: 40MG/0.8ML;
     Route: 058

REACTIONS (4)
  - Immunodeficiency [Recovering/Resolving]
  - Malaise [Recovering/Resolving]
  - Herpes zoster [Unknown]
  - Exposure to communicable disease [Recovering/Resolving]
